FAERS Safety Report 16965179 (Version 1)
Quarter: 2019Q4

REPORT INFORMATION
  Report Type: Spontaneous
  Country: US (occurrence: US)
  Receive Date: 20191028
  Receipt Date: 20191028
  Transmission Date: 20200122
  Serious: Yes (Hospitalization, Other)
  Sender: FDA-Public Use
  Company Number: US-SA-2019SA297542

PATIENT
  Age: 17 Year
  Sex: Female
  Weight: 56.69 kg

DRUGS (9)
  1. FOLIC ACID. [Concomitant]
     Active Substance: FOLIC ACID
     Dosage: 1 DF, QD
     Route: 048
     Dates: start: 20190904
  2. CEREZYME [Concomitant]
     Active Substance: IMIGLUCERASE
     Dosage: 1 DF, QOW
     Route: 042
     Dates: start: 20190904
  3. ZARXIO [Concomitant]
     Active Substance: FILGRASTIM-SNDZ
     Dosage: 300 UG, QD
     Route: 058
     Dates: start: 20190917
  4. METHADONE [Concomitant]
     Active Substance: METHADONE HYDROCHLORIDE
     Dosage: 1 DF, Q12H
     Route: 048
     Dates: start: 20190904
  5. LORATADINE. [Concomitant]
     Active Substance: LORATADINE
     Dosage: 1 DF, QD
     Route: 048
     Dates: start: 20190904
  6. GABAPENTIN. [Concomitant]
     Active Substance: GABAPENTIN
     Dosage: 1 DF, Q12H
     Route: 048
     Dates: start: 20190904
  7. ESCITALOPRAM [Concomitant]
     Active Substance: ESCITALOPRAM OXALATE
     Dosage: 1 DF, QD
     Route: 048
     Dates: start: 20190904
  8. CERDELGA [Suspect]
     Active Substance: ELIGLUSTAT
     Indication: GAUCHER^S DISEASE
     Dosage: , 84 MG, BID
     Route: 048
     Dates: start: 20190905
  9. GRANISETRON [Concomitant]
     Active Substance: GRANISETRON
     Dosage: 1 DF, QD
     Route: 048
     Dates: start: 20190904

REACTIONS (2)
  - Pyrexia [Unknown]
  - Neoplasm malignant [Unknown]
